FAERS Safety Report 24130952 (Version 1)
Quarter: 2024Q3

REPORT INFORMATION
  Report Type: Spontaneous
  Country: FR (occurrence: FR)
  Receive Date: 20240724
  Receipt Date: 20240724
  Transmission Date: 20241017
  Serious: Yes (Hospitalization)
  Sender: BAXTER
  Company Number: None

PATIENT
  Age: 4 Year
  Sex: Male
  Weight: 13.7 kg

DRUGS (9)
  1. CYCLOPHOSPHAMIDE [Suspect]
     Active Substance: CYCLOPHOSPHAMIDE
     Indication: Burkitt^s lymphoma
     Dosage: 500 MG/M2
     Route: 042
     Dates: start: 20240329, end: 20240511
  2. CYTARABINE [Suspect]
     Active Substance: CYTARABINE
     Indication: Burkitt^s lymphoma
     Dosage: 30 MG
     Route: 037
     Dates: start: 20240326, end: 20240531
  3. CYTARABINE [Suspect]
     Active Substance: CYTARABINE
     Dosage: 50 MG/M2
     Route: 042
     Dates: start: 20240601, end: 20240604
  4. DOXORUBICIN [Suspect]
     Active Substance: DOXORUBICIN
     Indication: Burkitt^s lymphoma
     Dosage: 60 MG/M2, ARROW
     Route: 042
     Dates: start: 20240405, end: 20240508
  5. ETOPOSIDE [Concomitant]
     Active Substance: ETOPOSIDE
     Indication: Burkitt^s lymphoma
     Dosage: 200 MG/M2, (VIATRIS) (FORMULATION: SOLUTION TO DILUTE FOR INFUSION)
     Route: 042
     Dates: start: 20240506, end: 20240604
  6. RITUXIMAB [Concomitant]
     Active Substance: RITUXIMAB
     Indication: Burkitt^s lymphoma
     Dosage: 375 MG/M2, (MAMMAL/HAMSTER/CHO CELLS)
     Route: 042
     Dates: start: 20240402, end: 20240530
  7. METHOTREXATE SODIUM [Concomitant]
     Active Substance: METHOTREXATE SODIUM
     Indication: Burkitt^s lymphoma
     Dosage: 15 MG
     Route: 037
     Dates: start: 20240326, end: 20240531
  8. VINCRISTINE [Concomitant]
     Active Substance: VINCRISTINE
     Indication: Burkitt^s lymphoma
     Dosage: 2 MG/M2, (STRENGTH: 2MG/2ML), FOMULATION: SOLUTION INJECTABLE
     Route: 042
     Dates: start: 20240329, end: 20240507
  9. HYDROCORTISONE [Concomitant]
     Active Substance: HYDROCORTISONE\HYDROCORTISONE ACETATE
     Indication: Burkitt^s lymphoma
     Dosage: 15 MG
     Route: 037
     Dates: start: 20240326, end: 20240531

REACTIONS (1)
  - Ejection fraction decreased [Recovering/Resolving]

NARRATIVE: CASE EVENT DATE: 20240614
